FAERS Safety Report 4907950-8 (Version None)
Quarter: 2006Q1

REPORT INFORMATION
  Report Type: 
  Country: None (occurrence: None)
  Receive Date: 20060207
  Receipt Date: 20060124
  Transmission Date: 20060701
  Serious: Yes (Hospitalization)
  Sender: FDA-Public Use
  Company Number: 2006BI000259

PATIENT
  Age: 51 Year
  Sex: Female

DRUGS (1)
  1. AVONEX LIQUID [Suspect]
     Indication: MULTIPLE SCLEROSIS
     Dosage: 30 UG; QW; IM
     Route: 030
     Dates: start: 20030601

REACTIONS (6)
  - ADRENOCORTICAL INSUFFICIENCY CHRONIC [None]
  - CHEST PAIN [None]
  - CONDITION AGGRAVATED [None]
  - DELIRIUM [None]
  - PITUITARY CYST [None]
  - STRESS [None]
